FAERS Safety Report 22260929 (Version 1)
Quarter: 2023Q2

REPORT INFORMATION
  Report Type: Spontaneous
  Country: US (occurrence: US)
  Receive Date: 20230427
  Receipt Date: 20230427
  Transmission Date: 20230721
  Serious: Yes (Other)
  Sender: FDA-Public Use
  Company Number: US-BIOXCEL THERAPEUTICS, INC.-2023BIX00014

PATIENT
  Sex: Female

DRUGS (1)
  1. IGALMI [Suspect]
     Active Substance: DEXMEDETOMIDINE
     Dosage: 60 ^MG^ [PRESUMED ?G] DOSE, ONCE

REACTIONS (2)
  - Hypotension [Recovered/Resolved]
  - Off label use [Recovered/Resolved]
